FAERS Safety Report 7933763-9 (Version None)
Quarter: 2011Q4

REPORT INFORMATION
  Report Type: 
  Country: None (occurrence: None)
  Receive Date: 20111122
  Receipt Date: 20111107
  Transmission Date: 20120403
  Serious: Yes (Other)
  Sender: FDA-Public Use
  Company Number: US-ROCHE-1010934

PATIENT
  Sex: Female

DRUGS (4)
  1. TRICOR [Concomitant]
     Indication: BLOOD TRIGLYCERIDES
  2. COPEGUS [Suspect]
     Indication: HEPATITIS
     Route: 065
     Dates: start: 19950901
  3. PEGINTERFERON ALFA-2A [Suspect]
     Indication: HEPATITIS
     Dosage: PEG-INTRON
     Route: 065
  4. TELAPREVIR [Suspect]
     Indication: HEPATITIS
     Route: 065

REACTIONS (3)
  - ANKLE FRACTURE [None]
  - HYPOTHYROIDISM [None]
  - MEMORY IMPAIRMENT [None]
